FAERS Safety Report 14337941 (Version 1)
Quarter: 2017Q4

REPORT INFORMATION
  Report Type: Spontaneous
  Country: FR (occurrence: FR)
  Receive Date: 20171229
  Receipt Date: 20171229
  Transmission Date: 20180321
  Serious: Yes (Disabling)
  Sender: FDA-Public Use
  Company Number: FR-OTSUKA-2017_028563

PATIENT
  Age: 70 Year
  Sex: Female
  Weight: 51 kg

DRUGS (9)
  1. NOCTAMIDE [Concomitant]
     Active Substance: LORMETAZEPAM
     Indication: PRODUCT USED FOR UNKNOWN INDICATION
     Dosage: UNK
     Route: 065
  2. AERIUS [Concomitant]
     Active Substance: DESLORATADINE
     Indication: PRODUCT USED FOR UNKNOWN INDICATION
     Dosage: UNK
     Route: 065
  3. MIANSERINE [Concomitant]
     Active Substance: MIANSERIN HYDROCHLORIDE
     Indication: PRODUCT USED FOR UNKNOWN INDICATION
     Dosage: UNK
     Route: 065
  4. CALTRATE WITH VITAMIN D [Concomitant]
     Active Substance: CALCIUM CARBONATE\CHOLECALCIFEROL
     Indication: PRODUCT USED FOR UNKNOWN INDICATION
     Dosage: UNK
     Route: 065
  5. DANATROL [Suspect]
     Active Substance: DANAZOL
     Indication: CHRONIC MYELOMONOCYTIC LEUKAEMIA
     Dosage: 2 DOSE(S), IN 1 DAY
     Route: 048
     Dates: start: 20150520, end: 201511
  6. EPREX [Suspect]
     Active Substance: ERYTHROPOIETIN
     Indication: ANAEMIA
     Dosage: 2000 IU, IN 1 WEEK
     Route: 058
     Dates: start: 20150302
  7. LEXOMIL [Concomitant]
     Active Substance: BROMAZEPAM
     Indication: PRODUCT USED FOR UNKNOWN INDICATION
     Dosage: REPORTED TRADE NAME: LEXOMIL ROCHE
     Route: 065
  8. DACOGEN [Suspect]
     Active Substance: DECITABINE
     Indication: CHRONIC MYELOMONOCYTIC LEUKAEMIA
     Dosage: 20 ?G/M2
     Route: 042
     Dates: start: 20151130, end: 20160422
  9. ACLASTA [Concomitant]
     Active Substance: ZOLEDRONIC ACID
     Indication: PRODUCT USED FOR UNKNOWN INDICATION
     Dosage: UNK
     Route: 065

REACTIONS (1)
  - Osteonecrosis [Recovering/Resolving]

NARRATIVE: CASE EVENT DATE: 201512
